FAERS Safety Report 22388848 (Version 1)
Quarter: 2023Q2

REPORT INFORMATION
  Report Type: Spontaneous
  Country: US (occurrence: US)
  Receive Date: 20230531
  Receipt Date: 20230531
  Transmission Date: 20230721
  Serious: Yes (Other)
  Sender: FDA-Public Use
  Company Number: US-INCYTE CORPORATION-2023IN005468

PATIENT

DRUGS (1)
  1. JAKAFI [Suspect]
     Active Substance: RUXOLITINIB
     Dosage: 25 MILLIGRAM, BID
     Route: 048

REACTIONS (5)
  - Procedural haemorrhage [Unknown]
  - Angiopathy [Unknown]
  - Red blood cell count abnormal [Unknown]
  - Haemoglobin abnormal [Unknown]
  - Haematocrit abnormal [Unknown]

NARRATIVE: CASE EVENT DATE: 20230401
